FAERS Safety Report 20616580 (Version 1)
Quarter: 2022Q1

REPORT INFORMATION
  Report Type: Spontaneous
  Country: CN (occurrence: CN)
  Receive Date: 20220321
  Receipt Date: 20220321
  Transmission Date: 20220423
  Serious: Yes (Hospitalization)
  Sender: FDA-Public Use
  Company Number: CN-PFIZER INC-202200383573

PATIENT
  Age: 81 Year
  Sex: Female
  Weight: 42 kg

DRUGS (1)
  1. XALKORI [Suspect]
     Active Substance: CRIZOTINIB
     Indication: Neoplasm
     Dosage: 200 MG, 1X/DAY
     Route: 048
     Dates: start: 20211110, end: 20211217

REACTIONS (8)
  - Liver injury [Recovering/Resolving]
  - Cough [Recovering/Resolving]
  - Increased viscosity of bronchial secretion [Recovering/Resolving]
  - Nausea [Recovering/Resolving]
  - Gastrooesophageal reflux disease [Recovering/Resolving]
  - Vomiting [Recovering/Resolving]
  - Dizziness postural [Recovering/Resolving]
  - Off label use [Unknown]

NARRATIVE: CASE EVENT DATE: 20211217
